FAERS Safety Report 10703232 (Version 1)
Quarter: 2015Q1

REPORT INFORMATION
  Report Type: Spontaneous
  Country: US (occurrence: US)
  Receive Date: 20150112
  Receipt Date: 20150112
  Transmission Date: 20150721
  Serious: Yes (Other)
  Sender: FDA-Public Use
  Company Number: US-AMGEN-USASP2015001061

PATIENT
  Age: 73 Year
  Sex: Female

DRUGS (1)
  1. ENBREL [Suspect]
     Active Substance: ETANERCEPT
     Indication: RHEUMATOID ARTHRITIS
     Dosage: 50 MG, QWK
     Route: 065
     Dates: start: 20030101

REACTIONS (13)
  - Rotator cuff syndrome [Not Recovered/Not Resolved]
  - Arthritis [Not Recovered/Not Resolved]
  - Insomnia [Unknown]
  - Tinnitus [Unknown]
  - Blindness [Unknown]
  - Tremor [Unknown]
  - Panic attack [Unknown]
  - Palpitations [Unknown]
  - Stress [Unknown]
  - Dry eye [Unknown]
  - Gastric ulcer [Unknown]
  - Depression [Unknown]
  - Back pain [Unknown]
